FAERS Safety Report 16859126 (Version 2)
Quarter: 2020Q1

REPORT INFORMATION
  Report Type: Other
  Country: US (occurrence: US)
  Receive Date: 20190926
  Receipt Date: 20200325
  Transmission Date: 20200409
  Serious: No
  Sender: FDA-Public Use
  Company Number: US-VERASTEM-2019-00145

PATIENT

DRUGS (2)
  1. COPIKTRA [Suspect]
     Active Substance: DUVELISIB
     Indication: ANGIOIMMUNOBLASTIC T-CELL LYMPHOMA
  2. COPIKTRA [Suspect]
     Active Substance: DUVELISIB
     Indication: NON-HODGKIN^S LYMPHOMA
     Dosage: 25 MG, BID
     Route: 048
     Dates: start: 20190819

REACTIONS (6)
  - Diarrhoea [Unknown]
  - Product use in unapproved indication [Not Recovered/Not Resolved]
  - Hyperaesthesia teeth [Unknown]
  - Flatulence [Unknown]
  - Gastrointestinal pain [Unknown]
  - Pollakiuria [Not Recovered/Not Resolved]

NARRATIVE: CASE EVENT DATE: 2019
